FAERS Safety Report 8810817 (Version 1)
Quarter: 2012Q4

REPORT INFORMATION
  Report Type: Spontaneous
  Country: US (occurrence: None)
  Receive Date: 20120924
  Receipt Date: 20120924
  Transmission Date: 20130627
  Serious: Yes (Hospitalization)
  Sender: FDA-Public Use
  Company Number: None

PATIENT
  Age: 64 Year
  Sex: Female
  Weight: 102.06 kg

DRUGS (1)
  1. ENALAPRIL [Suspect]
     Indication: HYPERTENSION
     Dosage: 20mg daily po
     Route: 048
     Dates: start: 20120327, end: 20120327

REACTIONS (9)
  - Pharyngeal oedema [None]
  - Swollen tongue [None]
  - Blood pressure increased [None]
  - Acute respiratory distress syndrome [None]
  - Angioedema [None]
  - Troponin increased [None]
  - Bradycardia [None]
  - Hypoxia [None]
  - Electrocardiogram QT prolonged [None]
